FAERS Safety Report 15290449 (Version 2)
Quarter: 2018Q3

REPORT INFORMATION
  Report Type: Report from Study
  Country: None (occurrence: DE)
  Receive Date: 20180817
  Receipt Date: 20180817
  Transmission Date: 20181010
  Serious: Yes (Hospitalization, Other)
  Sender: FDA-Public Use
  Company Number: DE-BAUSCH-BL-2018-021627

PATIENT
  Age: 28 Year
  Sex: Male
  Weight: 54 kg

DRUGS (21)
  1. AZATHIOPRINE. [Suspect]
     Active Substance: AZATHIOPRINE
     Dosage: DOSAGE FORM: UNSPECIFIED
     Route: 065
  2. BUDENOFALK [Suspect]
     Active Substance: BUDESONIDE
     Indication: PYLORIC STENOSIS
     Dosage: DOSAGE FORM: UNSPECIFIED
     Route: 065
  3. VITA B12 [Concomitant]
     Indication: VITAMIN B12 DEFICIENCY
     Dosage: DOSAGE FORM: UNSPECIFIED, AT THE BEGINNING OF EVERY MONTH, DOSE NOT REPORTED
     Route: 065
     Dates: start: 20160401
  4. VITA B12 [Concomitant]
     Dosage: DOSAGE FORM: UNSPECIFIED
     Route: 065
  5. MESALAZINE [Suspect]
     Active Substance: MESALAMINE
     Indication: PYLORIC STENOSIS
     Dosage: DOSAGE FORM: UNSPECIFIED
     Route: 065
  6. REMICADE [Suspect]
     Active Substance: INFLIXIMAB
     Indication: CROHN^S DISEASE
     Dosage: DOSAGE FORM: LYOPHILIZED POWDER
     Route: 042
     Dates: start: 20160211
  7. REMICADE [Suspect]
     Active Substance: INFLIXIMAB
     Dosage: DOSAGE FORM: LYOPHILIZED POWDER, ALSO REPORTED AS 100 MG
     Route: 042
     Dates: start: 201608
  8. SALOFALK GR [Concomitant]
     Dosage: DOSAGE FORM: UNSPECIFIED
     Route: 065
  9. PREDNISOLONE. [Suspect]
     Active Substance: PREDNISOLONE
     Indication: PYLORIC STENOSIS
     Dosage: DOSAGE FORM: UNSPECIFIED
     Route: 065
  10. REMICADE [Suspect]
     Active Substance: INFLIXIMAB
     Dosage: DOSAGE FORM: LYOPHILIZED POWDER
     Route: 042
     Dates: start: 20160401
  11. NOVALGIN (METAMIZOLE SODIUM) [Concomitant]
     Active Substance: METAMIZOLE SODIUM
     Indication: PAIN
     Dosage: DOSAGE FORM: UNKNOWN
     Route: 065
     Dates: start: 20171220
  12. AZATHIOPRINE. [Suspect]
     Active Substance: AZATHIOPRINE
     Indication: CROHN^S DISEASE
     Dosage: DOSAGE FORM: UNSPECIFIED
     Route: 065
  13. PANTOZOL [Concomitant]
     Active Substance: PANTOPRAZOLE SODIUM
     Indication: PROPHYLAXIS
     Dosage: DOSAGE FORM: 1 UNSPECIFIED UNITS; AS NECESSARY
     Route: 065
  14. VITAMIN D3 [Concomitant]
     Active Substance: CHOLECALCIFEROL
     Indication: PRODUCT USED FOR UNKNOWN INDICATION
     Dosage: DOSAGE FORM: UNKNOWN
  15. REMICADE [Suspect]
     Active Substance: INFLIXIMAB
     Dosage: DOSAGE FORM: LYOPHILIZED POWDER
     Route: 042
     Dates: start: 20170310, end: 20170310
  16. DEKRISTOL [Concomitant]
     Active Substance: CHOLECALCIFEROL
     Indication: CROHN^S DISEASE
     Dosage: DOSAGE FORM: UNSPECIFIED
     Route: 065
     Dates: start: 2016
  17. REMICADE [Suspect]
     Active Substance: INFLIXIMAB
     Dosage: DOSAGE FORM: LYOPHILIZED POWDER
     Route: 042
     Dates: start: 20161216
  18. FOLSAN [Concomitant]
     Active Substance: FOLIC ACID
     Indication: FOLATE DEFICIENCY
     Dosage: DOSAGE FORM: UNKNOWN
     Route: 065
     Dates: start: 20171202
  19. SALOFALK GR [Concomitant]
     Indication: CROHN^S DISEASE
     Dosage: DOSAGE FORM: UNSPECIFIED
     Route: 065
     Dates: start: 20160203
  20. PANTOZOL [Concomitant]
     Active Substance: PANTOPRAZOLE SODIUM
     Indication: GASTROINTESTINAL DISORDER THERAPY
     Dosage: DOSAGE FORM: UNSPECIFIED
     Route: 065
     Dates: start: 20160203
  21. PANTOZOL [Concomitant]
     Active Substance: PANTOPRAZOLE SODIUM
     Indication: ABDOMINAL PAIN
     Dosage: DOSAGE FORM: UNSPECIFIED, (CONFLICTINGLY REPORTED AS 02?DEC?2018)
     Route: 065
     Dates: start: 20171202

REACTIONS (11)
  - Gastrooesophageal sphincter insufficiency [Unknown]
  - General physical health deterioration [Recovered/Resolved]
  - Off label use [Unknown]
  - Drug ineffective [Not Recovered/Not Resolved]
  - Iron deficiency [Unknown]
  - Crohn^s disease [Not Recovered/Not Resolved]
  - Pancreatitis acute [Recovered/Resolved]
  - Depression [Recovered/Resolved]
  - Product use issue [Unknown]
  - Pyloric stenosis [Unknown]
  - Gastrointestinal stoma complication [Unknown]

NARRATIVE: CASE EVENT DATE: 201602
